FAERS Safety Report 25651087 (Version 1)
Quarter: 2025Q3

REPORT INFORMATION
  Report Type: Spontaneous
  Country: EU (occurrence: EU)
  Receive Date: 20250806
  Receipt Date: 20250806
  Transmission Date: 20251021
  Serious: Yes (Other)
  Sender: BAYER HEALTHCARE PHARMACEUTICALS INC.
  Company Number: None

PATIENT
  Age: 42 Year
  Sex: Male

DRUGS (1)
  1. MOXIFLOXACIN [Suspect]
     Active Substance: MOXIFLOXACIN
     Route: 048
     Dates: start: 20230803

REACTIONS (4)
  - Neuropathy peripheral [Unknown]
  - Anxiety [Unknown]
  - Neuralgia [Unknown]
  - Drug intolerance [Unknown]

NARRATIVE: CASE EVENT DATE: 20230813
